FAERS Safety Report 18493284 (Version 1)
Quarter: 2020Q4

REPORT INFORMATION
  Report Type: Spontaneous
  Country: CN (occurrence: CN)
  Receive Date: 20201111
  Receipt Date: 20201111
  Transmission Date: 20210114
  Serious: Yes (Other)
  Sender: FDA-Public Use
  Company Number: CN-TAKEDA-2020TUS049113

PATIENT

DRUGS (1)
  1. FEBUXOSTAT. [Suspect]
     Active Substance: FEBUXOSTAT
     Indication: GOUTY TOPHUS
     Dosage: 1 DOSAGE FORM, QD
     Route: 048

REACTIONS (3)
  - Skin necrosis [Unknown]
  - Impaired healing [Unknown]
  - Gout [Unknown]
